FAERS Safety Report 8167633-0 (Version None)
Quarter: 2012Q1

REPORT INFORMATION
  Report Type: 
  Country: None (occurrence: None)
  Receive Date: 20120103
  Receipt Date: 20111007
  Transmission Date: 20120608
  Serious: No
  Sender: FDA-Public Use
  Company Number: AE-2011-002141

PATIENT
  Age: 56 Year
  Sex: Female
  Weight: 56.246 kg

DRUGS (6)
  1. PRILOSEC [Concomitant]
  2. INCIVEK [Suspect]
     Dosage: 2250 MG (750 MG,1 IN 8 HR),ORAL
     Route: 048
     Dates: start: 20110928
  3. METOPROLOL TARTRATE [Concomitant]
  4. RIBAPAK (RIBAVIRIN) [Concomitant]
  5. PEGASYS [Concomitant]
  6. ESTROGEN (ESTROGENS) [Concomitant]

REACTIONS (4)
  - HYPERCHLORHYDRIA [None]
  - RASH ERYTHEMATOUS [None]
  - NAUSEA [None]
  - VOMITING [None]
